FAERS Safety Report 12784465 (Version 1)
Quarter: 2016Q3

REPORT INFORMATION
  Report Type: Spontaneous
  Country: DE (occurrence: DE)
  Receive Date: 20160927
  Receipt Date: 20160927
  Transmission Date: 20161109
  Serious: Yes (Other)
  Sender: FDA-Public Use
  Company Number: DE-SAOL THERAPEUTICS-2016SAO00717

PATIENT
  Sex: Male

DRUGS (1)
  1. BACLOFEN. [Suspect]
     Active Substance: BACLOFEN
     Dosage: UNKNOWN
     Route: 037

REACTIONS (1)
  - Implant site infection [Unknown]
